FAERS Safety Report 19486853 (Version 1)
Quarter: 2021Q3

REPORT INFORMATION
  Report Type: Spontaneous
  Country: US (occurrence: US)
  Receive Date: 20210702
  Receipt Date: 20210702
  Transmission Date: 20211014
  Serious: No
  Sender: FDA-Public Use
  Company Number: US-GLAXOSMITHKLINE-US2021140789

PATIENT
  Sex: Female

DRUGS (1)
  1. NUCALA [Suspect]
     Active Substance: MEPOLIZUMAB
     Indication: ASTHMA
     Dosage: UNK
     Dates: start: 202104

REACTIONS (13)
  - Dyspnoea [Unknown]
  - Asthma [Unknown]
  - Swelling face [Recovered/Resolved]
  - Peripheral swelling [Recovered/Resolved]
  - Anxiety [Unknown]
  - Swollen tongue [Recovered/Resolved]
  - Dizziness [Not Recovered/Not Resolved]
  - Vision blurred [Unknown]
  - Blood pressure increased [Recovered/Resolved]
  - Sleep disorder due to a general medical condition [Unknown]
  - Tongue disorder [Recovered/Resolved]
  - Drug ineffective [Unknown]
  - Wheezing [Unknown]
